FAERS Safety Report 8596877-9 (Version None)
Quarter: 2012Q3

REPORT INFORMATION
  Report Type: 
  Country: None (occurrence: None)
  Receive Date: 20120815
  Receipt Date: 20120810
  Transmission Date: 20120928
  Serious: Yes (Other)
  Sender: FDA-Public Use
  Company Number: MX-ABBOTT-12P-107-0967602-00

PATIENT
  Sex: Female
  Weight: 66 kg

DRUGS (15)
  1. ATEC [Concomitant]
     Indication: VARICOSE VEIN
  2. CELEBREX [Concomitant]
     Indication: SPONDYLITIS
  3. COMBIGAL [Concomitant]
     Indication: GLAUCOMA
     Route: 048
     Dates: start: 19920815
  4. ASPIRIN [Concomitant]
     Indication: GLAUCOMA
     Dosage: 1/4 TABLET EVERY NIGHT
     Route: 048
     Dates: start: 19920815
  5. TAVONIN [Concomitant]
     Indication: GLAUCOMA
     Route: 048
     Dates: start: 19920815
  6. TETIOSPAMIL [Concomitant]
     Indication: COLITIS
  7. JALATON [Concomitant]
     Indication: GLAUCOMA
  8. ULCEN [Concomitant]
     Indication: GASTRITIS
     Route: 048
  9. SALMAO [Concomitant]
     Indication: GASTRITIS
  10. AGLAD [Concomitant]
     Indication: GLAUCOMA
     Dates: start: 19920815
  11. GENTIL [Concomitant]
     Indication: GLAUCOMA
     Dosage: 3 OR 4 TIMES
     Route: 047
     Dates: start: 19920815
  12. HUMIRA [Suspect]
     Indication: SPONDYLITIS
     Route: 058
     Dates: start: 20120727
  13. VALIFOL [Concomitant]
     Indication: TUBERCULOSIS
     Dosage: 2 TABLETS DAILY
     Route: 048
  14. PATANOL [Concomitant]
     Indication: GLAUCOMA
     Route: 047
     Dates: start: 19920815
  15. LIPITOR [Concomitant]
     Indication: PRODUCT USED FOR UNKNOWN INDICATION
     Dosage: 1 TABLET EVERY NIGHT
     Route: 048

REACTIONS (2)
  - LIGAMENT SPRAIN [None]
  - FALL [None]
